FAERS Safety Report 5505942-1 (Version None)
Quarter: 2007Q4

REPORT INFORMATION
  Report Type: 
  Country: None (occurrence: None)
  Receive Date: 20071105
  Receipt Date: 20071030
  Transmission Date: 20080405
  Serious: Yes (Other)
  Sender: FDA-Public Use
  Company Number: PHRM2007FR02522

PATIENT
  Sex: Female

DRUGS (2)
  1. ZOMETA [Suspect]
     Route: 042
  2. CLASTOBAN [Suspect]
     Route: 048

REACTIONS (1)
  - OSTEONECROSIS [None]
